FAERS Safety Report 11411433 (Version 1)
Quarter: 2015Q3

REPORT INFORMATION
  Report Type: Spontaneous
  Country: US (occurrence: US)
  Receive Date: 20150821
  Receipt Date: 20150821
  Transmission Date: 20151125
  Serious: No
  Sender: FDA-Public Use
  Company Number: US-ELI_LILLY_AND_COMPANY-US201007003105

PATIENT
  Sex: Female

DRUGS (3)
  1. LANTUS [Concomitant]
     Active Substance: INSULIN GLARGINE
  2. HUMULIN R [Suspect]
     Active Substance: INSULIN HUMAN
     Indication: DIABETES MELLITUS
     Dosage: 32 U, DAILY (1/D)
     Dates: start: 20100506
  3. HUMULIN R [Suspect]
     Active Substance: INSULIN HUMAN
     Dosage: 39 U, DAILY (1/D)
     Dates: end: 20100529

REACTIONS (3)
  - Oedema [Recovering/Resolving]
  - Drug dose omission [Recovered/Resolved]
  - Blister [Recovering/Resolving]
